FAERS Safety Report 20565440 (Version 1)
Quarter: 2022Q1

REPORT INFORMATION
  Report Type: Spontaneous
  Country: US (occurrence: US)
  Receive Date: 20220308
  Receipt Date: 20220308
  Transmission Date: 20220423
  Serious: No
  Sender: FDA-Public Use
  Company Number: US-ALLERGAN-2202887US

PATIENT
  Sex: Female

DRUGS (1)
  1. ESTRADIOL [Suspect]
     Active Substance: ESTRADIOL
     Indication: Product used for unknown indication
     Dosage: 1 G, SINGLE
     Route: 067
     Dates: start: 202201

REACTIONS (3)
  - Genito-pelvic pain/penetration disorder [Recovered/Resolved]
  - Vulvovaginal burning sensation [Recovered/Resolved]
  - Hypersensitivity [Recovered/Resolved]
